FAERS Safety Report 5695248-2 (Version None)
Quarter: 2008Q2

REPORT INFORMATION
  Report Type: 
  Country: None (occurrence: None)
  Receive Date: 20080404
  Receipt Date: 20080307
  Transmission Date: 20081010
  Serious: No
  Sender: FDA-Public Use
  Company Number: US-BOEHRINGER INGELHEIM GMBH, GERMANY-2008-BP-03680BP

PATIENT
  Age: 74 Year
  Sex: Male
  Weight: 113 kg

DRUGS (1)
  1. FLOMAX [Suspect]
     Indication: BENIGN PROSTATIC HYPERPLASIA
     Route: 048

REACTIONS (4)
  - COUGH [None]
  - NASAL CONGESTION [None]
  - RHINITIS [None]
  - RHINORRHOEA [None]
